FAERS Safety Report 7927964-3 (Version None)
Quarter: 2011Q4

REPORT INFORMATION
  Report Type: 
  Country: None (occurrence: None)
  Receive Date: 20111115
  Receipt Date: 20111115
  Transmission Date: 20120403
  Serious: Yes (Other)
  Sender: FDA-Public Use
  Company Number: None

PATIENT
  Sex: Male
  Weight: 70.3075 kg

DRUGS (1)
  1. LAMOTRIGINE [Suspect]
     Indication: CONVULSION
     Dosage: 50 MG

REACTIONS (6)
  - ATAXIA [None]
  - PRODUCT SUBSTITUTION ISSUE [None]
  - CONTUSION [None]
  - CONDITION AGGRAVATED [None]
  - TREMOR [None]
  - FALL [None]
